FAERS Safety Report 4956559-9 (Version None)
Quarter: 2006Q1

REPORT INFORMATION
  Report Type: 
  Country: None (occurrence: None)
  Receive Date: 20060329
  Receipt Date: 20050324
  Transmission Date: 20060701
  Serious: Yes (Hospitalization, Other)
  Sender: FDA-Public Use
  Company Number: US-MERCK-0503USA04606

PATIENT
  Age: 66 Year
  Sex: Male
  Weight: 75 kg

DRUGS (2)
  1. VIOXX [Suspect]
     Indication: ARTHRITIS
     Route: 048
     Dates: start: 20030101, end: 20041006
  2. VIOXX [Suspect]
     Route: 048
     Dates: start: 20030101, end: 20041006

REACTIONS (7)
  - AORTIC VALVE DISEASE [None]
  - CARDIOVASCULAR DISORDER [None]
  - DUODENAL ULCER HAEMORRHAGE [None]
  - EMOTIONAL DISTRESS [None]
  - MITRAL VALVE DISEASE [None]
  - MYOCARDIAL INFARCTION [None]
  - STAPHYLOCOCCAL INFECTION [None]
